FAERS Safety Report 8571988-2 (Version None)
Quarter: 2012Q3

REPORT INFORMATION
  Report Type: 
  Country: None (occurrence: None)
  Receive Date: 20120806
  Receipt Date: 20120731
  Transmission Date: 20120928
  Serious: Yes (Death, Life-Threatening, Hospitalization)
  Sender: FDA-Public Use
  Company Number: US-CELGENEUS-163-21880-12071652

PATIENT
  Sex: Male

DRUGS (4)
  1. LASIX [Concomitant]
     Indication: HYDROTHORAX
     Route: 065
  2. GABAPENTIN [Concomitant]
     Indication: NEUROPATHY PERIPHERAL
     Route: 065
     Dates: start: 20120320
  3. DEXAMETHASONE [Concomitant]
     Dosage: 40 MILLIGRAM
     Route: 048
  4. REVLIMID [Suspect]
     Indication: MULTIPLE MYELOMA
     Dosage: 10 MILLIGRAM
     Route: 048
     Dates: start: 20120612

REACTIONS (3)
  - HEPATIC HYDROTHORAX [None]
  - SEPTIC SHOCK [None]
  - BRONCHOPULMONARY ASPERGILLOSIS [None]
